FAERS Safety Report 14563820 (Version 1)
Quarter: 2018Q1

REPORT INFORMATION
  Report Type: Spontaneous
  Country: US (occurrence: US)
  Receive Date: 20180222
  Receipt Date: 20180222
  Transmission Date: 20180509
  Serious: No
  Sender: FDA-Public Use
  Company Number: US-AMAG PHARMACEUTICALS, INC.-AMAG201800489

PATIENT

DRUGS (2)
  1. INTRAROSA [Suspect]
     Active Substance: PRASTERONE
     Indication: GENITAL ATROPHY
     Dosage: 6.5 MG, QD (DAILY)
     Route: 067
     Dates: start: 20180126, end: 20180130
  2. VALACYCLOVIR [Concomitant]
     Active Substance: VALACYCLOVIR HYDROCHLORIDE
     Indication: MENOPAUSE
     Dosage: UNK
     Route: 065

REACTIONS (4)
  - Vaginal odour [Not Recovered/Not Resolved]
  - Malabsorption from application site [Not Recovered/Not Resolved]
  - Vaginal discharge [Not Recovered/Not Resolved]
  - Off label use [Recovered/Resolved]

NARRATIVE: CASE EVENT DATE: 201801
